FAERS Safety Report 12654258 (Version 2)
Quarter: 2016Q3

REPORT INFORMATION
  Report Type: Spontaneous
  Country: US (occurrence: US)
  Receive Date: 20160816
  Receipt Date: 20160830
  Transmission Date: 20161109
  Serious: Yes (Other)
  Sender: FDA-Public Use
  Company Number: US-ROCHE-1813485

PATIENT
  Sex: Male

DRUGS (1)
  1. ESBRIET [Suspect]
     Active Substance: PIRFENIDONE
     Indication: IDIOPATHIC PULMONARY FIBROSIS
     Dosage: 3 CAPSULES THREE TIMES DAILY
     Route: 048
     Dates: start: 201605

REACTIONS (4)
  - Intestinal polyp [Unknown]
  - Bladder disorder [Unknown]
  - Diarrhoea [Unknown]
  - Fatigue [Unknown]
